FAERS Safety Report 8407999-7 (Version None)
Quarter: 2012Q2

REPORT INFORMATION
  Report Type: 
  Country: None (occurrence: None)
  Receive Date: 20120529
  Receipt Date: 20090115
  Transmission Date: 20120825
  Serious: Yes (Other)
  Sender: FDA-Public Use
  Company Number: JP-2012-12091

PATIENT
  Sex: Male

DRUGS (1)
  1. PLETAL [Suspect]
     Dosage: 50 MG MILLIGRAM(S), BID

REACTIONS (2)
  - LOSS OF CONSCIOUSNESS [None]
  - THERAPY CESSATION [None]
